FAERS Safety Report 25199751 (Version 1)
Quarter: 2025Q2

REPORT INFORMATION
  Report Type: Spontaneous
  Country: US (occurrence: None)
  Receive Date: 20250415
  Receipt Date: 20250415
  Transmission Date: 20250717
  Serious: Yes (Other)
  Sender: FDA-CTU
  Company Number: None

PATIENT
  Age: 71 Year
  Sex: Female
  Weight: 85.05 kg

DRUGS (1)
  1. DUPIXENT [Suspect]
     Active Substance: DUPILUMAB
     Indication: Eosinophilic oesophagitis
     Route: 058
     Dates: start: 20250407, end: 20250414

REACTIONS (5)
  - Fatigue [None]
  - Dysphemia [None]
  - Vision blurred [None]
  - Palpitations [None]
  - Amnesia [None]

NARRATIVE: CASE EVENT DATE: 20250408
